FAERS Safety Report 11759237 (Version 1)
Quarter: 2015Q4

REPORT INFORMATION
  Report Type: Spontaneous
  Country: US (occurrence: US)
  Receive Date: 20151120
  Receipt Date: 20151120
  Transmission Date: 20160304
  Serious: No
  Sender: FDA-Public Use
  Company Number: US-JNJFOC-20151006118

PATIENT
  Age: 39 Year
  Sex: Female
  Weight: 52.16 kg

DRUGS (7)
  1. MULTIVITAMINES [Concomitant]
     Active Substance: VITAMINS
     Indication: PRODUCT USED FOR UNKNOWN INDICATION
     Route: 065
  2. CYMBALTA [Concomitant]
     Active Substance: DULOXETINE HYDROCHLORIDE
     Indication: SURGERY
     Dosage: 2 YEARS
     Route: 065
  3. SINGULAIR [Concomitant]
     Active Substance: MONTELUKAST SODIUM
     Indication: MULTIPLE ALLERGIES
     Dosage: 8 YEARS
     Route: 065
  4. WOMENS ROGAINE UNSCENTED [Suspect]
     Active Substance: MINOXIDIL
     Route: 061
  5. WOMENS ROGAINE UNSCENTED [Suspect]
     Active Substance: MINOXIDIL
     Indication: ALOPECIA
     Dosage: HALF A CAP
     Route: 061
  6. NORTRIPTYLINE [Concomitant]
     Active Substance: NORTRIPTYLINE
     Indication: PAIN
     Dosage: 2 YEARS
     Route: 065
  7. PROAIR(SALBUTAMOL SULFATE) [Concomitant]
     Indication: ASTHMA
     Dosage: 30 YEARS
     Route: 065

REACTIONS (2)
  - Skin exfoliation [Recovering/Resolving]
  - Skin irritation [Recovering/Resolving]
